FAERS Safety Report 5841602-5 (Version None)
Quarter: 2008Q3

REPORT INFORMATION
  Report Type: 
  Country: None (occurrence: None)
  Receive Date: 20080812
  Receipt Date: 20080801
  Transmission Date: 20090109
  Serious: Yes (Hospitalization, Other)
  Sender: FDA-Public Use
  Company Number: US-ROCHE-541238

PATIENT
  Sex: Female

DRUGS (1)
  1. ACCUTANE [Suspect]
     Indication: DRUG USE FOR UNKNOWN INDICATION
     Route: 065
     Dates: start: 19990914, end: 20000508

REACTIONS (11)
  - ANAEMIA [None]
  - ANXIETY [None]
  - CROHN'S DISEASE [None]
  - DEPRESSION [None]
  - EMOTIONAL DISTRESS [None]
  - INFLAMMATORY BOWEL DISEASE [None]
  - INSOMNIA [None]
  - INTERVERTEBRAL DISC DEGENERATION [None]
  - IRRITABLE BOWEL SYNDROME [None]
  - RHEUMATOID ARTHRITIS [None]
  - SMALL INTESTINAL OBSTRUCTION [None]
